FAERS Safety Report 22383197 (Version 3)
Quarter: 2025Q1

REPORT INFORMATION
  Report Type: Spontaneous
  Country: CH (occurrence: CH)
  Receive Date: 20230530
  Receipt Date: 20250312
  Transmission Date: 20250408
  Serious: Yes (Other)
  Sender: MYLAN
  Company Number: CH-MYLANLABS-2023M1054480

PATIENT

DRUGS (4)
  1. SILDENAFIL CITRATE [Suspect]
     Active Substance: SILDENAFIL CITRATE
     Indication: Systemic scleroderma
     Dosage: 25 MILLIGRAM, BID
  2. SILDENAFIL CITRATE [Suspect]
     Active Substance: SILDENAFIL CITRATE
     Indication: Raynaud^s phenomenon
     Dosage: 1 DOSAGE FORM ,QD (FILM COATED TABLETS 20 MG BLISTER)
     Dates: start: 20230623
  3. SILDENAFIL CITRATE [Suspect]
     Active Substance: SILDENAFIL CITRATE
     Dosage: 1 DOSAGE FORM ,QD (FILM COATED TABLETS 20 MG BLISTER)
     Dates: start: 20231004
  4. ILOPROST [Concomitant]
     Active Substance: ILOPROST

REACTIONS (2)
  - Presyncope [Unknown]
  - Off label use [Unknown]
